FAERS Safety Report 7552273-4 (Version None)
Quarter: 2011Q2

REPORT INFORMATION
  Report Type: 
  Country: None (occurrence: None)
  Receive Date: 20110609
  Receipt Date: 20110527
  Transmission Date: 20111010
  Serious: Yes (Hospitalization)
  Sender: FDA-Public Use
  Company Number: DKLU1070506

PATIENT
  Sex: Female

DRUGS (7)
  1. CHLORAL HYDRATE (CHLORAL HYDRATE) [Concomitant]
  2. PREDNISOLONE [Concomitant]
  3. PYRIDOXINE HYDROCHLORIDE (PYRIDOXINE HYDROCHLORIDE) [Concomitant]
  4. OMEPRAZOLE [Concomitant]
  5. TRIMETHOPRIM [Concomitant]
  6. SABRIL [Suspect]
     Indication: PRODUCT USED FOR UNKNOWN INDICATION
  7. ACTH [Concomitant]

REACTIONS (1)
  - STEVENS-JOHNSON SYNDROME [None]
